FAERS Safety Report 6537875-6 (Version None)
Quarter: 2010Q1

REPORT INFORMATION
  Report Type: 
  Country: None (occurrence: None)
  Receive Date: 20100112
  Receipt Date: 20100112
  Transmission Date: 20100710
  Serious: Yes (Hospitalization, Other)
  Sender: FDA-Public Use
  Company Number: None

PATIENT
  Age: 45 Year
  Sex: Male
  Weight: 100.1 kg

DRUGS (17)
  1. XOLAIR [Suspect]
     Indication: ASTHMA
     Dosage: 150MG EVERY 4 WEEKS SQ
     Route: 058
     Dates: start: 20091106, end: 20091214
  2. FEXOFENADINE [Concomitant]
  3. SINGULAIR [Concomitant]
  4. HYDROXYZINE HCL [Concomitant]
  5. BUDESONIDE/FORMOTEROL -SYMBICO [Concomitant]
  6. FLONASE [Concomitant]
  7. NAPROXEN [Concomitant]
  8. EPINEPHRINE -EPIPEN- [Concomitant]
  9. REPAGLINIDE -PRANDIN- [Concomitant]
  10. LANTUS [Concomitant]
  11. ASPIRIN [Concomitant]
  12. COUMADIN [Concomitant]
  13. COUMADIN [Concomitant]
  14. LOVENOX [Concomitant]
  15. NORVASC [Concomitant]
  16. TELMIS/HCTZ -MICARDIS HCT- [Concomitant]
  17. SIMVASTATIN [Concomitant]

REACTIONS (1)
  - DEEP VEIN THROMBOSIS [None]
